FAERS Safety Report 24394093 (Version 1)
Quarter: 2024Q4

REPORT INFORMATION
  Report Type: Spontaneous
  Country: US (occurrence: US)
  Receive Date: 20241003
  Receipt Date: 20241003
  Transmission Date: 20250114
  Serious: No
  Sender: MERCK
  Company Number: US-009507513-2409USA008657

PATIENT
  Age: 54 Year
  Sex: Male

DRUGS (3)
  1. CUBICIN [Suspect]
     Active Substance: DAPTOMYCIN
     Indication: Staphylococcal infection
     Dosage: 8MG/KG
  2. CUBICIN [Suspect]
     Active Substance: DAPTOMYCIN
     Dosage: 10MG/KG
  3. CEFTAROLINE [Concomitant]
     Active Substance: CEFTAROLINE
     Indication: Staphylococcal infection

REACTIONS (1)
  - Incorrect dose administered [Unknown]
